FAERS Safety Report 23391220 (Version 10)
Quarter: 2025Q1

REPORT INFORMATION
  Report Type: Report from Study
  Country: CA (occurrence: CA)
  Receive Date: 20240111
  Receipt Date: 20250311
  Transmission Date: 20250409
  Serious: Yes (Hospitalization, Other)
  Sender: TAKEDA
  Company Number: CA-TAKEDA-2024TUS001803

PATIENT
  Age: 80 Year
  Sex: Female

DRUGS (11)
  1. VEDOLIZUMAB [Suspect]
     Active Substance: VEDOLIZUMAB
     Indication: Crohn^s disease
  2. VEDOLIZUMAB [Suspect]
     Active Substance: VEDOLIZUMAB
  3. VEDOLIZUMAB [Suspect]
     Active Substance: VEDOLIZUMAB
  4. WARFARIN [Suspect]
     Active Substance: WARFARIN
     Indication: Product used for unknown indication
  5. METFORMIN [Concomitant]
     Active Substance: METFORMIN HYDROCHLORIDE
  6. PREDNISONE [Concomitant]
     Active Substance: PREDNISONE
  7. Gluconorm [Concomitant]
  8. SYNTHROID [Concomitant]
     Active Substance: LEVOTHYROXINE SODIUM
  9. ENTOCORT [Concomitant]
     Active Substance: BUDESONIDE
  10. ELIQUIS [Concomitant]
     Active Substance: APIXABAN
  11. METOPROLOL [Concomitant]
     Active Substance: METOPROLOL

REACTIONS (11)
  - Cardiac disorder [Recovering/Resolving]
  - Thrombosis [Unknown]
  - Diarrhoea [Unknown]
  - Malaise [Unknown]
  - Myalgia [Unknown]
  - Faeces soft [Unknown]
  - Poor quality sleep [Unknown]
  - Inappropriate schedule of product administration [Unknown]
  - Abdominal pain [Unknown]
  - Fatigue [Unknown]
  - Nausea [Unknown]

NARRATIVE: CASE EVENT DATE: 20240307
